FAERS Safety Report 7089408-6 (Version None)
Quarter: 2010Q4

REPORT INFORMATION
  Report Type: 
  Country: None (occurrence: None)
  Receive Date: 20101108
  Receipt Date: 20101102
  Transmission Date: 20110411
  Serious: Yes (Hospitalization)
  Sender: FDA-Public Use
  Company Number: US-ELI_LILLY_AND_COMPANY-US201010001275

PATIENT
  Sex: Male
  Weight: 149 kg

DRUGS (13)
  1. BYETTA [Suspect]
     Indication: TYPE 2 DIABETES MELLITUS
     Dosage: 5 UG, UNK
     Dates: start: 20100902, end: 20100914
  2. METOPROLOL TARTRATE [Concomitant]
     Dosage: 50 MG, 2/D
     Route: 048
     Dates: start: 20100804
  3. WARFARIN SODIUM [Concomitant]
     Dosage: 1 MG, UNK
     Route: 048
     Dates: start: 20100804
  4. CARDIZEM CD [Concomitant]
     Dosage: 360 MG, UNK
     Route: 048
     Dates: start: 20100804
  5. CHLORTHALIDONE [Concomitant]
     Dosage: 25 MG, UNK
     Route: 048
     Dates: start: 20100804
  6. DIGOXIN [Concomitant]
     Dosage: 250 UG, UNK
     Route: 048
     Dates: start: 20100804
  7. SIMVASTATIN [Concomitant]
     Dosage: 20 MG, UNK
     Route: 048
     Dates: start: 20100909
  8. LISINOPRIL [Concomitant]
     Dosage: 10 MG, UNK
     Route: 048
     Dates: start: 20100831
  9. GLUCOTROL XL [Concomitant]
     Dosage: 20 MG, UNK
     Route: 048
     Dates: start: 20100728
  10. OXYGEN [Concomitant]
     Dates: start: 20100630
  11. ALLOPURINOL [Concomitant]
     Dosage: 200 MG, UNK
     Route: 048
     Dates: start: 20100604
  12. ASPIRIN [Concomitant]
     Dosage: 81 MG, UNK
     Route: 048
     Dates: start: 20091203
  13. PROVENTIL-HFA [Concomitant]
     Dosage: 90 UG, AS NEEDED
     Route: 055
     Dates: start: 20091203

REACTIONS (2)
  - PANCREATITIS ACUTE [None]
  - WEIGHT DECREASED [None]
